FAERS Safety Report 21579839 (Version 2)
Quarter: 2022Q4

REPORT INFORMATION
  Report Type: Report from Study
  Country: FR (occurrence: None)
  Receive Date: 20221110
  Receipt Date: 20221116
  Transmission Date: 20230113
  Serious: Yes (Hospitalization)
  Sender: FDA-Public Use
  Company Number: FR-Eisai Medical Research-EC-2022-127724

PATIENT
  Age: 84 Year
  Sex: Female
  Weight: 59 kg

DRUGS (13)
  1. LENVATINIB [Suspect]
     Active Substance: LENVATINIB
     Indication: Endometrial cancer
     Dosage: STARTING DOSE AT 20 MG, FLUCTUATED DOSE
     Route: 048
     Dates: start: 20220224, end: 20221103
  2. PEMBROLIZUMAB [Suspect]
     Active Substance: PEMBROLIZUMAB
     Indication: Endometrial cancer
     Dosage: VISTOLOMAB (MK-7684) 200 MG (+) PEMBROLIZUMAB (MK-3475) 200 MG
     Route: 042
     Dates: start: 20220224, end: 20221014
  3. PROPRANOLOL [Concomitant]
     Active Substance: PROPRANOLOL HYDROCHLORIDE
     Dates: start: 201701
  4. CARTEOLOL HYDROCHLORIDE [Concomitant]
     Active Substance: CARTEOLOL HYDROCHLORIDE
     Dates: start: 202201
  5. LATANOPROST [Concomitant]
     Active Substance: LATANOPROST
     Dates: start: 202201
  6. HYDROCHLOROTHIAZIDE [Concomitant]
     Active Substance: HYDROCHLOROTHIAZIDE
     Dates: start: 20220301
  7. LERCANIDIPINE [Concomitant]
     Active Substance: LERCANIDIPINE
     Dates: start: 20220512
  8. MAGNESIUM PIDOLATE [Concomitant]
     Active Substance: MAGNESIUM PIDOLATE
     Dates: start: 20220520
  9. IRBESARTAN [Concomitant]
     Active Substance: IRBESARTAN
     Dates: start: 20220629
  10. NERISONE [Concomitant]
     Active Substance: DIFLUCORTOLONE VALERATE
     Dates: start: 20220902
  11. LEVOTHYROXINE SODIUM [Concomitant]
     Active Substance: LEVOTHYROXINE SODIUM
     Dates: start: 20221014
  12. GAVISCONELL MENTHE [CALCIUM CARBONATE;SODIUM ALGINATE;SODIUM BICARBONA [Concomitant]
     Dates: start: 20221014
  13. VIBOSTOLIMAB [Suspect]
     Active Substance: VIBOSTOLIMAB

REACTIONS (1)
  - Hyponatraemia [Not Recovered/Not Resolved]

NARRATIVE: CASE EVENT DATE: 20221104
